FAERS Safety Report 8916628 (Version 8)
Quarter: 2013Q3

REPORT INFORMATION
  Report Type: Report from Study
  Country: JP (occurrence: JP)
  Receive Date: 20121120
  Receipt Date: 20130828
  Transmission Date: 20140515
  Serious: Yes (Death, Hospitalization, Other)
  Sender: FDA-Public Use
  Company Number: JP-VERTEX PHARMACEUTICAL INC.-2012-024793

PATIENT
  Age: 72 Year
  Sex: Male

DRUGS (28)
  1. VX-950 (TELAPREVIR) [Suspect]
     Indication: CHRONIC HEPATITIS C
     Dosage: 1500 MG, QD
     Route: 048
     Dates: start: 20120807, end: 20120924
  2. VX-950 (TELAPREVIR) [Suspect]
     Dosage: 1000 MG, QD
     Route: 048
     Dates: start: 20120925, end: 20121029
  3. RIBAVIRIN [Suspect]
     Indication: CHRONIC HEPATITIS C
     Dosage: 800 MG, QD
     Route: 048
     Dates: start: 20120807, end: 20120827
  4. RIBAVIRIN [Suspect]
     Dosage: 600 MG, QD
     Route: 048
     Dates: start: 20120828, end: 20120910
  5. RIBAVIRIN [Suspect]
     Dosage: 400 MG, QD
     Route: 048
     Dates: start: 20120911, end: 20120924
  6. RIBAVIRIN [Suspect]
     Dosage: 600 MG, QD
     Route: 048
     Dates: start: 20120925, end: 20121029
  7. RIBAVIRIN [Suspect]
     Dosage: 400 MG, QD
     Route: 048
     Dates: start: 20121030, end: 20121102
  8. PEGINTERFERON ALFA-2B [Suspect]
     Indication: CHRONIC HEPATITIS C
     Dosage: 1.5 ?G/KG,QW
     Route: 058
     Dates: start: 20120807, end: 20120924
  9. PEGINTERFERON ALFA-2B [Suspect]
     Dosage: 80 ?G, QW
     Route: 058
     Dates: start: 20120925, end: 20121030
  10. PREDNISOLONE [Suspect]
     Indication: RASH
     Dosage: 30 MG, QD
     Route: 048
     Dates: start: 20121009, end: 20121011
  11. PREDNISOLONE [Suspect]
     Indication: ADVERSE EVENT
     Dosage: 20 MG, QD
     Route: 048
     Dates: start: 20121012, end: 20121029
  12. PREDNISOLONE [Suspect]
     Dosage: 15 MG, QD
     Dates: start: 20121030, end: 20121109
  13. BLOPRESS [Concomitant]
     Dosage: 4 MG, QD
     Route: 048
     Dates: end: 20121106
  14. VOLTAREN [Concomitant]
     Dosage: 37.5 MG, PRN
     Route: 048
     Dates: start: 20120807, end: 20121106
  15. PROMAC [Concomitant]
     Dosage: 150 MG, QD
     Route: 048
     Dates: start: 20120807, end: 20121106
  16. ALOSENN [Concomitant]
     Dosage: 0.5 G/ DAY, PRN
     Route: 048
     Dates: start: 20120809
  17. ZYRTEC [Concomitant]
     Dosage: 10 MG, QD
     Route: 048
     Dates: start: 20120814, end: 20121110
  18. FEBURIC [Concomitant]
     Dosage: 40 MG, QD
     Route: 048
  19. PURSENNID [Concomitant]
     Dosage: 36 MG, QD
     Route: 048
     Dates: start: 20121030, end: 20121110
  20. VEEN 3G [Concomitant]
     Dosage: 500 ML, QD
     Route: 042
     Dates: start: 20121110, end: 20121111
  21. PENTCILLIN [Concomitant]
     Dosage: 2 DF, QD
     Route: 042
     Dates: start: 20121110, end: 20121111
  22. VEEN-F [Concomitant]
     Dosage: 500 ML, QD
     Route: 042
     Dates: start: 20121110, end: 20121110
  23. BFLUID [Concomitant]
     Dosage: 500 ML, QD
     Route: 042
     Dates: start: 20121110, end: 20121111
  24. ISOTONIC SODIUM CHLORIDE SOLUTION [Concomitant]
     Dosage: 100 ML, QD
     Route: 042
     Dates: start: 20121110, end: 20121111
  25. PREDONINE [Concomitant]
     Dosage: 2 DF, QD
     Route: 042
     Dates: start: 20121110, end: 20121111
  26. METILON [Concomitant]
     Dosage: 1 DF, QD
     Route: 030
     Dates: start: 20121110, end: 20121110
  27. VEEN D [Concomitant]
     Dosage: 500 ML, QD
     Route: 042
     Dates: start: 20121111, end: 20121111
  28. VITAMIN C [Concomitant]
     Dosage: 1 DF, QD
     Route: 042
     Dates: start: 20121111, end: 20121111

REACTIONS (4)
  - Decreased appetite [Recovered/Resolved]
  - Rash [Recovered/Resolved]
  - Cerebral haemorrhage [Fatal]
  - Pneumonia [Not Recovered/Not Resolved]
